FAERS Safety Report 11195497 (Version 1)
Quarter: 2015Q2

REPORT INFORMATION
  Report Type: Report from Study
  Country: US (occurrence: None)
  Receive Date: 20150616
  Receipt Date: 20150616
  Transmission Date: 20150821
  Serious: Yes (Hospitalization)
  Sender: FDA-Public Use
  Company Number: US-2015CRT000522

PATIENT
  Age: 43 Year
  Sex: Female
  Weight: 71.2 kg

DRUGS (9)
  1. KORLYM [Suspect]
     Active Substance: MIFEPRISTONE
     Indication: CUSHING^S SYNDROME
     Route: 048
     Dates: start: 20131010, end: 20140119
  2. SYNTHROID [Concomitant]
     Active Substance: LEVOTHYROXINE SODIUM
  3. POTASSIUM (POTASSIUM) [Concomitant]
     Active Substance: POTASSIUM
  4. METOCLOPRAMIDE (METOPROCLAMIDE) [Concomitant]
  5. VICODIN  (HYDROCODONE BITARTRATE , PARACETAMOL) [Concomitant]
  6. VALIUM [Concomitant]
     Active Substance: DIAZEPAM
  7. FUROSEMIDE (FUROSEMIDE) [Concomitant]
     Active Substance: FUROSEMIDE
  8. INSULIN (INSULIN) [Concomitant]
     Active Substance: INSULIN NOS
  9. CARISOPRODOL (CARISOPRODOL) [Concomitant]
     Active Substance: CARISOPRODOL

REACTIONS (1)
  - Vascular graft [None]

NARRATIVE: CASE EVENT DATE: 20150602
